FAERS Safety Report 9034685 (Version 1)
Quarter: 2013Q1

REPORT INFORMATION
  Report Type: Spontaneous
  Country: US (occurrence: None)
  Receive Date: 20130116
  Receipt Date: 20130116
  Transmission Date: 20140127
  Serious: Yes (Disabling, Other)
  Sender: FDA-Public Use
  Company Number: None

PATIENT
  Sex: Female
  Weight: 81.65 kg

DRUGS (1)
  1. MIRENA [Suspect]

REACTIONS (10)
  - Pain [None]
  - Amenorrhoea [None]
  - Arthralgia [None]
  - Pain in extremity [None]
  - Pain in extremity [None]
  - Device dislocation [None]
  - Gait disturbance [None]
  - Exercise tolerance decreased [None]
  - Pain in extremity [None]
  - Activities of daily living impaired [None]
